FAERS Safety Report 6565139-3 (Version None)
Quarter: 2010Q1

REPORT INFORMATION
  Report Type: 
  Country: None (occurrence: None)
  Receive Date: 20100201
  Receipt Date: 20100126
  Transmission Date: 20100710
  Serious: Yes (Hospitalization)
  Sender: FDA-Public Use
  Company Number: B0595659A

PATIENT
  Sex: Male

DRUGS (8)
  1. AUGMENTIN '125' [Suspect]
     Indication: UPPER RESPIRATORY TRACT INFECTION
     Dosage: 2G PER DAY
     Route: 048
     Dates: start: 20090821, end: 20090831
  2. INEGY [Suspect]
     Indication: DYSLIPIDAEMIA
     Dosage: .5TAB PER DAY
     Route: 048
     Dates: start: 20090801, end: 20090906
  3. OKI [Suspect]
     Indication: ABDOMINAL PAIN UPPER
     Dosage: 1TAB PER DAY
     Route: 048
     Dates: start: 20090906, end: 20090906
  4. INSULIN [Concomitant]
     Route: 065
  5. SEROPRAM [Concomitant]
     Route: 065
  6. ESIDRIX [Concomitant]
     Route: 065
  7. TENSOGARD [Concomitant]
     Route: 065
  8. FOSTER [Concomitant]
     Route: 065

REACTIONS (1)
  - HEPATIC NECROSIS [None]
